FAERS Safety Report 23756592 (Version 1)
Quarter: 2024Q2

REPORT INFORMATION
  Report Type: Spontaneous
  Country: US (occurrence: None)
  Receive Date: 20240417
  Receipt Date: 20240417
  Transmission Date: 20240716
  Serious: No
  Sender: FDA-Public Use
  Company Number: None

PATIENT
  Age: 67 Year
  Sex: Female
  Weight: 69.75 kg

DRUGS (2)
  1. UBRELVY [Suspect]
     Active Substance: UBROGEPANT
     Indication: Migraine
     Dosage: 1 TABLET ORAL?
     Route: 048
     Dates: start: 20240301, end: 20240301
  2. NURTEC ODT [Suspect]
     Active Substance: RIMEGEPANT SULFATE
     Indication: Migraine
     Dosage: 1 TABLET ORAL
     Route: 048
     Dates: start: 20240201, end: 20240201

REACTIONS (10)
  - Pain of skin [None]
  - Arthralgia [None]
  - Headache [None]
  - Chills [None]
  - Tremor [None]
  - Chills [None]
  - Memory impairment [None]
  - Oral discomfort [None]
  - Stomatitis [None]
  - Hypoaesthesia [None]

NARRATIVE: CASE EVENT DATE: 20240301
